FAERS Safety Report 7725372-1 (Version None)
Quarter: 2011Q3

REPORT INFORMATION
  Report Type: 
  Country: None (occurrence: None)
  Receive Date: 20110902
  Receipt Date: 20110823
  Transmission Date: 20111222
  Serious: Yes (Hospitalization)
  Sender: FDA-Public Use
  Company Number: US-JNJFOC-20110810916

PATIENT
  Sex: Male
  Weight: 65.8 kg

DRUGS (4)
  1. ZYTIGA [Suspect]
     Route: 048
  2. ZYTIGA [Suspect]
     Indication: PROSTATE CANCER
     Route: 048
     Dates: start: 20110519, end: 20110809
  3. LUPRON [Suspect]
     Indication: PROSTATE CANCER
     Route: 030
  4. PREDNISONE [Suspect]
     Indication: PROSTATE CANCER
     Route: 048

REACTIONS (1)
  - STAPHYLOCOCCAL INFECTION [None]
